FAERS Safety Report 6095350-X (Version None)
Quarter: 2009Q1

REPORT INFORMATION
  Report Type: 
  Country: None (occurrence: None)
  Receive Date: 20090227
  Receipt Date: 20080320
  Transmission Date: 20090719
  Serious: No
  Sender: FDA-Public Use
  Company Number: A0714993A

PATIENT
  Age: 38 Year
  Sex: Female

DRUGS (7)
  1. LAMICTAL [Suspect]
     Indication: BIPOLAR DISORDER
     Dosage: 25MG PER DAY
     Route: 048
     Dates: start: 20080201
  2. KLONOPIN [Concomitant]
     Dosage: 1MG FOUR TIMES PER DAY
  3. CYMBALTA [Concomitant]
  4. TRAZODONE HCL [Concomitant]
  5. VISTARIL [Concomitant]
     Dosage: 50MG TWICE PER DAY
  6. SINGULAIR [Concomitant]
  7. ADVAIR HFA [Concomitant]

REACTIONS (5)
  - EYE SWELLING [None]
  - FURUNCLE [None]
  - RASH [None]
  - SKIN INFECTION [None]
  - SKIN REACTION [None]
